FAERS Safety Report 5960492-3 (Version None)
Quarter: 2008Q4

REPORT INFORMATION
  Report Type: 
  Country: None (occurrence: None)
  Receive Date: 20081120
  Receipt Date: 20080221
  Transmission Date: 20090506
  Serious: No
  Sender: FDA-Public Use
  Company Number: US-ABBOTT-08P-163-0439476-00

PATIENT
  Sex: Female
  Weight: 63.56 kg

DRUGS (5)
  1. BIAXIN [Suspect]
     Indication: BACTERIAL INFECTION
     Route: 048
     Dates: end: 20070801
  2. BIAXIN [Suspect]
     Indication: BLOOD IMMUNOGLOBULIN A
  3. PROPANALOL [Concomitant]
     Indication: DRUG USE FOR UNKNOWN INDICATION
     Route: 048
  4. AMITRIPTYLINE HCL [Concomitant]
     Indication: DRUG USE FOR UNKNOWN INDICATION
     Route: 048
  5. ACYCLOVIR [Concomitant]
     Indication: HERPES SIMPLEX
     Route: 048

REACTIONS (1)
  - HEPATIC ENZYME INCREASED [None]
